FAERS Safety Report 9540705 (Version 1)
Quarter: 2013Q3

REPORT INFORMATION
  Report Type: Spontaneous
  Country: US (occurrence: US)
  Receive Date: 20130920
  Receipt Date: 20130920
  Transmission Date: 20140515
  Serious: Yes (Hospitalization, Other)
  Sender: FDA-Public Use
  Company Number: US-BRISTOL-MYERS SQUIBB COMPANY-19426055

PATIENT
  Age: 78 Year
  Sex: Male
  Weight: 93.9 kg

DRUGS (15)
  1. MEGESTROL ACETATE [Suspect]
     Indication: INCREASED APPETITE
     Route: 048
     Dates: start: 201101
  2. DULCOLAX [Concomitant]
     Indication: CONSTIPATION
  3. NITROGLYCERIN [Concomitant]
     Indication: ANGINA PECTORIS
  4. COLACE [Concomitant]
     Indication: CONSTIPATION
  5. DILTIAZEM CD [Concomitant]
     Indication: ATRIAL FIBRILLATION
     Dates: start: 20110106
  6. ASPIRIN [Concomitant]
     Indication: PROPHYLAXIS
     Dates: start: 20110101
  7. FERROUS SULFATE [Concomitant]
     Indication: MINERAL SUPPLEMENTATION
  8. LASIX [Concomitant]
     Indication: HYPERTENSION
     Dates: start: 201101
  9. LISINOPRIL [Concomitant]
     Indication: HYPERTENSION
     Dates: start: 20101220
  10. MAGNESIUM OXIDE [Concomitant]
  11. METOPROLOL [Concomitant]
     Indication: DIABETES MELLITUS
  12. PROTONIX [Concomitant]
     Indication: PROPHYLAXIS
     Dates: start: 20110107
  13. FRAGMIN [Concomitant]
     Indication: PROPHYLAXIS
     Dates: start: 20110107
  14. METFORMIN [Concomitant]
  15. DICLOFENAC [Concomitant]

REACTIONS (1)
  - Ascites [Not Recovered/Not Resolved]
